FAERS Safety Report 20177037 (Version 1)
Quarter: 2021Q4

REPORT INFORMATION
  Report Type: Spontaneous
  Country: US (occurrence: None)
  Receive Date: 20211211
  Receipt Date: 20211211
  Transmission Date: 20220303
  Serious: Yes (Disabling)
  Sender: FDA-Public Use
  Company Number: None

PATIENT
  Age: 16 Year
  Sex: Female
  Weight: 50.4 kg

DRUGS (4)
  1. JUNEL FE 1/20 [Suspect]
     Active Substance: ETHINYL ESTRADIOL\NORETHINDRONE ACETATE
     Indication: Blood oestrogen increased
     Route: 048
     Dates: start: 20180601, end: 20201002
  2. MULTI-VITAMIN [Concomitant]
     Active Substance: .ALPHA.-TOCOPHEROL ACETATE, DL-\ASCORBIC ACID\CYANOCOBALAMIN\FLUORIDE ION\FOLIC ACID\NIACIN\PYRIDOXI
  3. SENNA [Concomitant]
     Active Substance: SENNA LEAF\SENNOSIDES\SENNOSIDES A AND B
  4. LACTASE [Concomitant]
     Active Substance: LACTASE

REACTIONS (6)
  - Menopausal symptoms [None]
  - Amenorrhoea [None]
  - Gastrointestinal disorder [None]
  - Fatigue [None]
  - Insomnia [None]
  - Hot flush [None]

NARRATIVE: CASE EVENT DATE: 20210401
